FAERS Safety Report 22014661 (Version 1)
Quarter: 2023Q1

REPORT INFORMATION
  Report Type: Report from Study
  Country: JP (occurrence: JP)
  Receive Date: 20230221
  Receipt Date: 20230221
  Transmission Date: 20230417
  Serious: Yes (Other)
  Sender: FDA-Public Use
  Company Number: JP-JNJFOC-20230230093

PATIENT

DRUGS (5)
  1. REMICADE [Suspect]
     Active Substance: INFLIXIMAB
     Indication: Behcet^s syndrome
     Dosage: ON WEEKS 0, 2, AND 6, AND THEN EVERY 8 WEEKS. FOR MORE THAN 10 YEARS
     Route: 041
  2. COLCHICINE [Concomitant]
     Active Substance: COLCHICINE
     Indication: Behcet^s syndrome
  3. CYCLOSPORINE [Concomitant]
     Active Substance: CYCLOSPORINE
     Indication: Behcet^s syndrome
  4. METHOTREXATE [Concomitant]
     Active Substance: METHOTREXATE
     Indication: Behcet^s syndrome
  5. AZATHIOPRINE [Concomitant]
     Active Substance: AZATHIOPRINE
     Indication: Behcet^s syndrome

REACTIONS (9)
  - Pneumonia [Unknown]
  - Tuberculosis [Unknown]
  - Liver injury [Unknown]
  - Adverse event [Unknown]
  - Gastroenteritis [Unknown]
  - Infusion related reaction [Unknown]
  - Psoriasis [Unknown]
  - Rash [Unknown]
  - Upper respiratory tract infection [Unknown]
